FAERS Safety Report 6428307-7 (Version None)
Quarter: 2009Q4

REPORT INFORMATION
  Report Type: 
  Country: None (occurrence: None)
  Receive Date: 20091105
  Receipt Date: 20091029
  Transmission Date: 20100525
  Serious: Yes (Death, Hospitalization)
  Sender: FDA-Public Use
  Company Number: US-BAYER-200913792NA

PATIENT
  Age: 79 Year
  Sex: Male

DRUGS (1)
  1. NEXAVAR [Suspect]
     Indication: HEPATIC NEOPLASM MALIGNANT
     Route: 048
     Dates: start: 20090201

REACTIONS (4)
  - BURNING SENSATION [None]
  - CEREBROVASCULAR ACCIDENT [None]
  - HEPATIC NEOPLASM MALIGNANT [None]
  - PAIN IN EXTREMITY [None]
